FAERS Safety Report 4953067-6 (Version None)
Quarter: 2006Q1

REPORT INFORMATION
  Report Type: 
  Country: None (occurrence: None)
  Receive Date: 20060321
  Receipt Date: 20060310
  Transmission Date: 20060701
  Serious: Yes (Hospitalization)
  Sender: FDA-Public Use
  Company Number: 028-C5013-06030327

PATIENT
  Age: 66 Year
  Sex: Female
  Weight: 43 kg

DRUGS (2)
  1. LENALIDOMIDE [Suspect]
     Indication: MULTIPLE MYELOMA
     Dosage: 25 MG, QD FOR 21D, ORAL
     Route: 048
     Dates: start: 20051229, end: 20060310
  2. DEXAMETHASONE [Suspect]
     Indication: MULTIPLE MYELOMA
     Dosage: QD ON DAYS 1-4, 9-12, 17-20
     Dates: start: 20051229, end: 20060310

REACTIONS (3)
  - NEUTROPENIA [None]
  - RESPIRATORY TRACT INFECTION [None]
  - WHITE BLOOD CELL COUNT DECREASED [None]
